FAERS Safety Report 5067102-0 (Version None)
Quarter: 2006Q3

REPORT INFORMATION
  Report Type: 
  Country: None (occurrence: None)
  Receive Date: 20060801
  Receipt Date: 20060605
  Transmission Date: 20061208
  Serious: Yes (Hospitalization)
  Sender: FDA-Public Use
  Company Number: ES-BRISTOL-MYERS SQUIBB COMPANY-13401146

PATIENT
  Age: 75 Year
  Sex: Male
  Weight: 67 kg

DRUGS (5)
  1. CARBOPLATIN [Suspect]
     Indication: NON-SMALL CELL LUNG CANCER
     Route: 042
     Dates: start: 20060504
  2. PACLITAXEL [Suspect]
     Indication: NON-SMALL CELL LUNG CANCER
     Route: 042
     Dates: start: 20060504
  3. DOXAZOSIN [Concomitant]
     Route: 048
     Dates: start: 20060323
  4. ASPIRIN [Concomitant]
     Route: 048
     Dates: start: 20060323
  5. PANTOPRAZOLE SODIUM [Concomitant]
     Route: 048
     Dates: start: 20060323

REACTIONS (2)
  - HAEMOPTYSIS [None]
  - HYPERGLYCAEMIA [None]
